FAERS Safety Report 7351245-2 (Version None)
Quarter: 2011Q1

REPORT INFORMATION
  Report Type: 
  Country: None (occurrence: None)
  Receive Date: 20110314
  Receipt Date: 20110309
  Transmission Date: 20110831
  Serious: Yes (Other)
  Sender: FDA-Public Use
  Company Number: FR-PFIZER INC-2011051265

PATIENT
  Age: 56 Year
  Sex: Female

DRUGS (6)
  1. LAMALINE [Concomitant]
     Indication: NEURALGIA
  2. PARACETAMOL [Concomitant]
     Indication: NEURALGIA
  3. PRAVASTATIN SODIUM [Concomitant]
     Indication: HYPERCHOLESTEROLAEMIA
  4. KERLONE [Concomitant]
     Indication: HYPERTENSION
  5. NEXIUM [Concomitant]
     Indication: PROPHYLAXIS
  6. LYRICA [Suspect]
     Indication: NEURALGIA
     Dosage: 75 MG, 2X/DAY
     Dates: start: 20100101

REACTIONS (1)
  - CONVULSION [None]
